FAERS Safety Report 12241679 (Version 1)
Quarter: 2016Q2

REPORT INFORMATION
  Report Type: Spontaneous
  Country: US (occurrence: None)
  Receive Date: 20160405
  Receipt Date: 20160405
  Transmission Date: 20160815
  Serious: Yes (Disabling)
  Sender: FDA-Public Use
  Company Number: None

PATIENT
  Age: 48 Year
  Sex: Female
  Weight: 141.07 kg

DRUGS (14)
  1. ZOLOFT [Concomitant]
     Active Substance: SERTRALINE HYDROCHLORIDE
  2. MYRBETRIQ [Concomitant]
     Active Substance: MIRABEGRON
  3. NARATRIPTAN HCL (AMERGE) [Concomitant]
  4. TOPAMAX [Concomitant]
     Active Substance: TOPIRAMATE
  5. FISH OIL [Concomitant]
     Active Substance: FISH OIL
  6. VITAMIN D2 [Concomitant]
     Active Substance: ERGOCALCIFEROL
  7. WARFARIN [Concomitant]
     Active Substance: WARFARIN
  8. AMBIEN [Concomitant]
     Active Substance: ZOLPIDEM TARTRATE
  9. EPIPEN [Concomitant]
     Active Substance: EPINEPHRINE
  10. INDRAL LA [Concomitant]
  11. B-12 SHOTS [Concomitant]
  12. VALIUM [Concomitant]
     Active Substance: DIAZEPAM
  13. ZECUITY [Suspect]
     Active Substance: SUMATRIPTAN SUCCINATE
     Indication: MIGRAINE
     Dosage: 2 PATCH (ES) AS NEEDED  APPLIED AS MEDICATED PATCH TO SKIN
     Dates: start: 20160305, end: 20160310
  14. OMEPRAZOLE DR [Concomitant]
     Active Substance: OMEPRAZOLE

REACTIONS (7)
  - Application site vesicles [None]
  - Abdominal pain upper [None]
  - Application site exfoliation [None]
  - Application site pain [None]
  - Application site erythema [None]
  - Diarrhoea [None]
  - Nausea [None]

NARRATIVE: CASE EVENT DATE: 20160305
